FAERS Safety Report 14287644 (Version 2)
Quarter: 2019Q1

REPORT INFORMATION
  Report Type: Spontaneous
  Country: DE (occurrence: DE)
  Receive Date: 20171214
  Receipt Date: 20190328
  Transmission Date: 20190417
  Serious: Yes (Hospitalization, Other)
  Sender: FDA-Public Use
  Company Number: DE-MYLANLABS-2017M1031159

PATIENT
  Age: 67 Year
  Sex: Male
  Weight: 82 kg

DRUGS (4)
  1. TAMSULOSIN [Suspect]
     Active Substance: TAMSULOSIN
     Indication: PRODUCT USED FOR UNKNOWN INDICATION
     Dosage: 0.4 MG, QD
     Route: 048
     Dates: start: 20170218, end: 20170223
  2. OMEPRAZOL                          /00661201/ [Concomitant]
     Active Substance: OMEPRAZOLE
     Dosage: 40 MILLIGRAM, QD, DAILY DOSE: 40 MG MILLIGRAM(S) EVERY DAY
     Route: 065
  3. BISOPROLOL [Concomitant]
     Active Substance: BISOPROLOL
     Dosage: 5 MILLIGRAM, QD,DAILY DOSE: 10 MG MILLIGRAM(S) EVERY DAY
     Route: 065
  4. LOSARTAN                           /01121602/ [Concomitant]
     Active Substance: LOSARTAN
     Dosage: 100 MILLIGRAM, QD,DAILY DOSE: 100 MG MILLIGRAM(S) EVERY DAY
     Route: 065

REACTIONS (3)
  - Jaundice [Unknown]
  - Gamma-glutamyltransferase increased [Recovered/Resolved]
  - Transaminases increased [Recovered/Resolved]

NARRATIVE: CASE EVENT DATE: 20170222
